FAERS Safety Report 13597940 (Version 3)
Quarter: 2017Q2

REPORT INFORMATION
  Report Type: Report from Study
  Country: MX (occurrence: MX)
  Receive Date: 20170531
  Receipt Date: 20170614
  Transmission Date: 20170830
  Serious: Yes (Other)
  Sender: FDA-Public Use
  Company Number: MX-EMD SERONO-E2B_80069936

PATIENT
  Age: 12 Year
  Sex: Female

DRUGS (2)
  1. SAIZEN [Suspect]
     Active Substance: SOMATROPIN
     Indication: BODY HEIGHT BELOW NORMAL
     Route: 058
     Dates: start: 20170107
  2. SAIZEN [Suspect]
     Active Substance: SOMATROPIN
     Dosage: 5 IU
     Route: 058
     Dates: start: 20170517

REACTIONS (5)
  - Incorrect dose administered [Unknown]
  - Diabetes mellitus [Unknown]
  - Off label use [Unknown]
  - Device use error [Unknown]
  - Weight increased [Unknown]

NARRATIVE: CASE EVENT DATE: 201701
